FAERS Safety Report 19269285 (Version 1)
Quarter: 2021Q2

REPORT INFORMATION
  Report Type: Spontaneous
  Country: US (occurrence: US)
  Receive Date: 20210518
  Receipt Date: 20210518
  Transmission Date: 20210717
  Serious: Yes (Death, Hospitalization)
  Sender: FDA-Public Use
  Company Number: None

PATIENT
  Age: 86 Year
  Sex: Female
  Weight: 44.45 kg

DRUGS (8)
  1. MVI [Concomitant]
     Active Substance: VITAMINS
  2. REMICADE [Suspect]
     Active Substance: INFLIXIMAB
  3. ZYRTEC [Concomitant]
     Active Substance: CETIRIZINE HYDROCHLORIDE
  4. REMICADE [Concomitant]
     Active Substance: INFLIXIMAB
  5. WIXELA INHUB [Concomitant]
     Active Substance: FLUTICASONE PROPIONATE\SALMETEROL XINAFOATE
  6. CALCIUM CARBONATE?VITAMIN D3 [Concomitant]
  7. DELTASONE [Concomitant]
     Active Substance: PREDNISONE
  8. METOPROLOL SUCCINATE (TOPROL?XL) [Concomitant]

REACTIONS (3)
  - Colitis ulcerative [None]
  - Drug ineffective [None]
  - Dehydration [None]
